FAERS Safety Report 9106787 (Version 2)
Quarter: 2013Q2

REPORT INFORMATION
  Report Type: Spontaneous
  Country: US (occurrence: US)
  Receive Date: 20130221
  Receipt Date: 20130424
  Transmission Date: 20140414
  Serious: No
  Sender: FDA-Public Use
  Company Number: US-FRI-1000042744

PATIENT
  Sex: Male

DRUGS (1)
  1. LINZESS [Suspect]

REACTIONS (1)
  - Diarrhoea [Unknown]
